FAERS Safety Report 7535594-0 (Version None)
Quarter: 2011Q2

REPORT INFORMATION
  Report Type: 
  Country: None (occurrence: None)
  Receive Date: 20110601
  Receipt Date: 20110523
  Transmission Date: 20111010
  Serious: Yes (Hospitalization, Other)
  Sender: FDA-Public Use
  Company Number: 2011SP023381

PATIENT
  Age: 67 Year
  Sex: Male

DRUGS (2)
  1. TEMODAL [Concomitant]
  2. TEMODAL [Suspect]
     Indication: GLIOBLASTOMA

REACTIONS (2)
  - APLASIA [None]
  - FEBRILE NEUTROPENIA [None]
